FAERS Safety Report 9912663 (Version 5)
Quarter: 2014Q3

REPORT INFORMATION
  Report Type: Spontaneous
  Country: CA (occurrence: None)
  Receive Date: 20140212
  Receipt Date: 20140730
  Transmission Date: 20150326
  Serious: Yes (Other)
  Sender: FDA-Public Use
  Company Number: 2014CA003005

PATIENT
  Age: 72 Year
  Sex: Male
  Weight: 81 kg

DRUGS (1)
  1. PONATINIB [Suspect]
     Active Substance: PONATINIB
     Indication: CHRONIC MYELOID LEUKAEMIA
     Route: 048
     Dates: start: 20130406, end: 20140128

REACTIONS (2)
  - Gait disturbance [None]
  - Peripheral arterial occlusive disease [None]

NARRATIVE: CASE EVENT DATE: 20140128
